FAERS Safety Report 12950170 (Version 1)
Quarter: 2016Q4

REPORT INFORMATION
  Report Type: Spontaneous
  Country: TR (occurrence: TR)
  Receive Date: 20161116
  Receipt Date: 20161116
  Transmission Date: 20170207
  Serious: Yes (Hospitalization)
  Sender: FDA-Public Use
  Company Number: TR-ABBVIE-16P-161-1780841-00

PATIENT
  Age: 44 Year
  Sex: Female

DRUGS (1)
  1. HUMIRA [Suspect]
     Active Substance: ADALIMUMAB
     Indication: RHEUMATOID ARTHRITIS
     Route: 058

REACTIONS (9)
  - Dermatomyositis [Unknown]
  - Fatigue [Unknown]
  - Interstitial lung disease [Not Recovered/Not Resolved]
  - Mobility decreased [Unknown]
  - Rash [Unknown]
  - Rash erythematous [Unknown]
  - Rales [Unknown]
  - Dyspnoea [Unknown]
  - Muscular weakness [Unknown]
